FAERS Safety Report 8987087 (Version 3)
Quarter: 2013Q3

REPORT INFORMATION
  Report Type: Spontaneous
  Country: US (occurrence: US)
  Receive Date: 20121227
  Receipt Date: 20130819
  Transmission Date: 20140515
  Serious: Yes (Hospitalization)
  Sender: FDA-Public Use
  Company Number: US-AMGEN-USASP2012082899

PATIENT
  Age: 57 Year
  Sex: Female
  Weight: 83.19 kg

DRUGS (15)
  1. PEGFILGRASTIM [Suspect]
     Indication: PRODUCT USED FOR UNKNOWN INDICATION
     Dosage: UNK
     Route: 065
     Dates: start: 20121108, end: 20121108
  2. PEGFILGRASTIM [Suspect]
     Dosage: UNK
     Route: 065
     Dates: start: 20121129, end: 20121129
  3. PERTUZUMAB [Suspect]
     Indication: BREAST CANCER
     Dosage: UNK
     Route: 042
     Dates: start: 20121107
  4. TRASTUZUMAB [Suspect]
     Indication: BREAST CANCER
     Dosage: UNK
     Route: 042
     Dates: start: 20121107
  5. DEXAMETHASONE [Concomitant]
     Dosage: 8 MG, BID
     Dates: start: 20121106, end: 20121108
  6. DEXAMETHASONE [Concomitant]
     Dosage: 8 MG, BID
     Dates: start: 20121127, end: 20121129
  7. PROCHLORPERAZINE [Concomitant]
     Dosage: 10 MG, AS REQUIRED
     Dates: start: 20121112
  8. CETIRIZINE                         /00884302/ [Concomitant]
     Dosage: 10 MG, UNK
     Dates: start: 199508
  9. LEVOTHYROXINE                      /00068002/ [Concomitant]
     Dosage: 112 MUG, UNK
     Dates: start: 200311
  10. CALCIUM CARBONATE [Concomitant]
     Dosage: 500 MG, UNK
     Dates: start: 200510
  11. VITAMIN D3 [Concomitant]
     Dosage: 1 DF, DAILY
     Dates: start: 201103
  12. FISH OIL [Concomitant]
     Dosage: 2 DF, UNK
     Dates: start: 201008
  13. LORAZEPAM [Concomitant]
     Dosage: 0.5 MG, PRN
     Dates: start: 20121107, end: 201302
  14. APREPITANT [Concomitant]
     Dosage: TRIPACK
     Dates: start: 20121128, end: 201302
  15. PANTOPRAZOLE [Concomitant]
     Dosage: 40 MG, UNK
     Dates: start: 20121204

REACTIONS (3)
  - Pyrexia [Recovered/Resolved]
  - Diverticulitis [Recovered/Resolved]
  - Cellulitis [Recovered/Resolved with Sequelae]
